FAERS Safety Report 7097809-5 (Version None)
Quarter: 2010Q4

REPORT INFORMATION
  Report Type: 
  Country: None (occurrence: None)
  Receive Date: 20101103
  Receipt Date: 20101026
  Transmission Date: 20110411
  Serious: Yes (Hospitalization)
  Sender: FDA-Public Use
  Company Number: 2010MA003957

PATIENT
  Age: 59 Year
  Sex: Male

DRUGS (7)
  1. PROPRANOLOL HCL [Suspect]
  2. LISINOPRIL [Concomitant]
  3. FUROSEMIDE [Concomitant]
  4. SPIRONOLACTONE [Concomitant]
  5. INSULIN [Concomitant]
  6. LACTULOSE [Concomitant]
  7. SERTRALINE HYDROCHLORIDE [Concomitant]

REACTIONS (7)
  - BLOOD ALKALINE PHOSPHATASE INCREASED [None]
  - BLOOD BILIRUBIN INCREASED [None]
  - BLOOD GLUCOSE INCREASED [None]
  - HAEMOGLOBIN DECREASED [None]
  - PERITONEAL FIBROSIS [None]
  - SCLEROSING ENCAPSULATING PERITONITIS [None]
  - SMALL INTESTINAL OBSTRUCTION [None]
